FAERS Safety Report 9264347 (Version 1)
Quarter: 2013Q2

REPORT INFORMATION
  Report Type: Spontaneous
  Country: US (occurrence: US)
  Receive Date: 20130430
  Receipt Date: 20130430
  Transmission Date: 20140414
  Serious: No
  Sender: FDA-Public Use
  Company Number: US-009507513-1304USA016205

PATIENT
  Sex: Female

DRUGS (3)
  1. JANUMET XR [Suspect]
     Indication: DIABETES MELLITUS
     Dosage: 1001000 MG, UNK
     Route: 048
  2. LEVEMIR [Concomitant]
  3. METFORMIN [Concomitant]

REACTIONS (2)
  - Blood glucose increased [Recovered/Resolved]
  - Pain in extremity [Recovered/Resolved]
